FAERS Safety Report 8072451-8 (Version None)
Quarter: 2012Q1

REPORT INFORMATION
  Report Type: 
  Country: None (occurrence: None)
  Receive Date: 20120126
  Receipt Date: 20120118
  Transmission Date: 20120608
  Serious: Yes (Hospitalization)
  Sender: FDA-Public Use
  Company Number: US-AMGEN-USASP2012004176

PATIENT
  Age: 87 Year
  Sex: Male
  Weight: 65.76 kg

DRUGS (2)
  1. PROCRIT [Suspect]
     Indication: MYELODYSPLASTIC SYNDROME
     Dosage: UNK
     Dates: start: 20110201, end: 20111026
  2. PROCRIT [Suspect]
     Dosage: 10000 IU, UNK
     Dates: start: 20111214, end: 20111214

REACTIONS (2)
  - HAEMOGLOBIN DECREASED [None]
  - HIP FRACTURE [None]
